FAERS Safety Report 6290227-9 (Version None)
Quarter: 2009Q3

REPORT INFORMATION
  Report Type: 
  Country: None (occurrence: None)
  Receive Date: 20090730
  Receipt Date: 20090114
  Transmission Date: 20100115
  Serious: Yes (Life-Threatening)
  Sender: FDA-Public Use
  Company Number: US-BRISTOL-MYERS SQUIBB COMPANY-14476493

PATIENT
  Sex: Male

DRUGS (5)
  1. OXYCODONE HCL AND ACETAMINOPHEN [Suspect]
     Route: 048
  2. WARFARIN SODIUM [Suspect]
     Route: 065
  3. LIPITOR [Concomitant]
     Route: 065
  4. AMBIEN CR [Concomitant]
     Route: 065
  5. LORAZEPAM [Concomitant]

REACTIONS (4)
  - BLEEDING TIME PROLONGED [None]
  - COAGULATION TIME PROLONGED [None]
  - HAEMATOMA [None]
  - HAEMORRHAGE SUBCUTANEOUS [None]
